FAERS Safety Report 5419524-3 (Version None)
Quarter: 2007Q3

REPORT INFORMATION
  Report Type: 
  Country: None (occurrence: None)
  Receive Date: 20070820
  Receipt Date: 20070814
  Transmission Date: 20080115
  Serious: Yes (Hospitalization)
  Sender: FDA-Public Use
  Company Number: AU-AVENTIS-200717028GDDC

PATIENT
  Age: 76 Year
  Sex: Female

DRUGS (6)
  1. LANTUS [Suspect]
     Dosage: DOSE: 10-14
     Dates: start: 20061101
  2. AUTOPEN INSULIN INJECTION PEN [Suspect]
  3. KARVEA [Concomitant]
     Route: 048
     Dates: start: 20060101
  4. LIPITOR [Concomitant]
     Route: 048
     Dates: start: 20060101
  5. HYGROTON [Concomitant]
     Route: 048
     Dates: start: 20060101
  6. KREDEX [Concomitant]
     Route: 048
     Dates: start: 20070101

REACTIONS (3)
  - BLOOD GLUCOSE INCREASED [None]
  - HYPOGLYCAEMIA [None]
  - LOWER RESPIRATORY TRACT INFECTION [None]
